FAERS Safety Report 16981759 (Version 1)
Quarter: 2019Q4

REPORT INFORMATION
  Report Type: Report from Study
  Country: CA (occurrence: CA)
  Receive Date: 20191101
  Receipt Date: 20191101
  Transmission Date: 20200122
  Serious: Yes (Other)
  Sender: FDA-Public Use
  Company Number: CA-TAKEDA-2019TUS056251

PATIENT
  Age: 68 Year
  Sex: Female

DRUGS (11)
  1. CORTISONE [Suspect]
     Active Substance: CORTISONE
     Indication: ARTHRITIS
     Dosage: UNK
     Route: 065
  2. GLUCOSAMINE [Concomitant]
     Active Substance: GLUCOSAMINE
     Dosage: UNK
  3. CALCIUM [Concomitant]
     Active Substance: CALCIUM
     Dosage: UNK
  4. VIT D [Concomitant]
     Active Substance: VITAMIN D NOS
     Dosage: UNK
  5. VEDOLIZUMAB [Suspect]
     Active Substance: VEDOLIZUMAB
     Dosage: 300 MILLIGRAM, Q4WEEKS
     Route: 042
  6. SEREVENT DISKUS [Concomitant]
     Active Substance: SALMETEROL XINAFOATE
     Indication: CHRONIC OBSTRUCTIVE PULMONARY DISEASE
     Dosage: UNK
  7. VITAMIN B12 [Concomitant]
     Active Substance: CYANOCOBALAMIN
     Dosage: UNK
  8. VEDOLIZUMAB [Suspect]
     Active Substance: VEDOLIZUMAB
     Dosage: 300 MILLIGRAM, Q4WEEKS
     Route: 042
     Dates: start: 20191001
  9. VEDOLIZUMAB [Suspect]
     Active Substance: VEDOLIZUMAB
     Indication: COLITIS MICROSCOPIC
     Dosage: 300 MILLIGRAM
     Route: 042
     Dates: start: 20190625
  10. ZINC. [Concomitant]
     Active Substance: ZINC
     Dosage: UNK
  11. SPIRIVA [Concomitant]
     Active Substance: TIOTROPIUM BROMIDE MONOHYDRATE
     Dosage: UNK

REACTIONS (3)
  - Off label use [Unknown]
  - Post procedural infection [Unknown]
  - Ligament sprain [Unknown]

NARRATIVE: CASE EVENT DATE: 20190625
